FAERS Safety Report 11096485 (Version 1)
Quarter: 2015Q2

REPORT INFORMATION
  Report Type: Spontaneous
  Country: US (occurrence: None)
  Receive Date: 20150505
  Receipt Date: 20150505
  Transmission Date: 20150821
  Serious: Yes (Other)
  Sender: FDA-Public Use
  Company Number: FK201502002

PATIENT
  Age: 36 Year
  Sex: Male

DRUGS (4)
  1. BUPIVACAINE (MANUFACTURER UNKNOWN) (BUPIVACAINE) (BUPIVACAINE) [Suspect]
     Active Substance: BUPIVACAINE
     Indication: PHANTOM PAIN
     Route: 037
  2. CLONIDINE HYDROCHLORIDE INJECTION (MANUFACTURER UNKNOWN) (CLONIDINE HYDROCHLORIDE) (CLONIDINE HYDROCHLORIDE) [Suspect]
     Active Substance: CLONIDINE HYDROCHLORIDE
     Indication: PHANTOM PAIN
     Route: 037
  3. MORPHINE (MANUFACTURER UNKNOWN) (MORPHINE) (MORPHINE) [Suspect]
     Active Substance: MORPHINE
     Indication: PHANTOM PAIN
     Route: 037
  4. PRIALT [Concomitant]
     Active Substance: ZICONOTIDE ACETATE
     Indication: PHANTOM PAIN
     Route: 037

REACTIONS (2)
  - Cauda equina syndrome [None]
  - Catheter site mass [None]
